FAERS Safety Report 10575928 (Version 1)
Quarter: 2014Q4

REPORT INFORMATION
  Report Type: Spontaneous
  Country: US (occurrence: ES)
  Receive Date: 20141111
  Receipt Date: 20141111
  Transmission Date: 20150529
  Serious: Yes (Other)
  Sender: FDA-Public Use
  Company Number: ES-CELGENE-ESP-2014110304

PATIENT
  Age: 58 Year
  Sex: Female

DRUGS (1)
  1. REVLIMID [Suspect]
     Active Substance: LENALIDOMIDE
     Indication: PLASMA CELL MYELOMA
     Dosage: 3.75 MILLIGRAM
     Route: 048
     Dates: end: 201410

REACTIONS (6)
  - Campylobacter gastroenteritis [Unknown]
  - Drug-induced liver injury [Unknown]
  - Anaemia [Unknown]
  - Cardiac failure congestive [Unknown]
  - Myopathy [Unknown]
  - Light chain analysis increased [Unknown]
